FAERS Safety Report 5616372-6 (Version None)
Quarter: 2008Q1

REPORT INFORMATION
  Report Type: 
  Country: None (occurrence: None)
  Receive Date: 20080205
  Receipt Date: 20080205
  Transmission Date: 20080703
  Serious: Yes (Other)
  Sender: FDA-Public Use
  Company Number: None

PATIENT
  Sex: Female
  Weight: 61.6892 kg

DRUGS (5)
  1. SERTRALINE [Suspect]
     Indication: DEPRESSION
  2. BUPROPION HCL [Concomitant]
  3. PROCRIT [Concomitant]
  4. COPEGUS [Concomitant]
  5. LEVOTHYROX [Concomitant]

REACTIONS (1)
  - CONVULSION [None]
